FAERS Safety Report 7416837-0 (Version None)
Quarter: 2011Q2

REPORT INFORMATION
  Report Type: 
  Country: None (occurrence: None)
  Receive Date: 20110407
  Receipt Date: 20110328
  Transmission Date: 20111010
  Serious: Yes (Life-Threatening, Hospitalization)
  Sender: FDA-Public Use
  Company Number: 844999

PATIENT
  Age: 76 Year
  Sex: Male

DRUGS (12)
  1. ASPIRIN [Concomitant]
  2. IRBESARTAN [Concomitant]
  3. (ONDANSETRON) [Suspect]
     Indication: PROPHYLAXIS OF NAUSEA AND VOMITING
     Dosage: 8 MG MILLIGRAM(S), INTRAVENOUS
     Route: 042
     Dates: start: 20110111, end: 20110111
  4. DEXAMETHASONE [Suspect]
     Indication: PROPHYLAXIS OF NAUSEA AND VOMITING
     Dosage: 8 MG MILLIGRAM(S), ORAL
     Route: 048
     Dates: start: 20110111, end: 20110113
  5. ISOSORBIDE MONONITRATE [Concomitant]
  6. (FERROUS SULPHATE /00023503/) [Concomitant]
  7. (GLICLAZIDE) [Concomitant]
  8. AMLODIPINE [Concomitant]
  9. (BISOPROLOL FUMARATE) [Concomitant]
  10. METFORMIN HYDROCHLORIDE [Concomitant]
  11. IRINOTECAN HCL [Suspect]
     Indication: COLON CANCER STAGE IV
     Dosage: 620 MG MILLIGRAM(S), INTRAVENOUS
     Route: 042
     Dates: start: 20110111, end: 20110111
  12. PRAVASTATIN [Concomitant]

REACTIONS (3)
  - CHEST DISCOMFORT [None]
  - DIARRHOEA [None]
  - VOMITING [None]
